FAERS Safety Report 11244184 (Version 1)
Quarter: 2015Q3

REPORT INFORMATION
  Report Type: Spontaneous
  Country: US (occurrence: US)
  Receive Date: 20150707
  Receipt Date: 20150707
  Transmission Date: 20151125
  Serious: No
  Sender: FDA-Public Use
  Company Number: US-ASTRAZENECA-2015SE65643

PATIENT
  Age: 65 Year
  Sex: Female
  Weight: 63.7 kg

DRUGS (5)
  1. HYDROCODEINE [Concomitant]
     Active Substance: DIHYDROCODEINE PHOSPHATE
     Indication: PAIN
     Dosage: 5MG/325MG, 1 TAB EVERY 4 TO 6 HOURS AS NEEDED
  2. AMLODIPINE [Concomitant]
     Active Substance: AMLODIPINE BESYLATE
  3. PALBOCICLIB [Concomitant]
     Active Substance: PALBOCICLIB
     Route: 048
  4. FASLODEX [Suspect]
     Active Substance: FULVESTRANT
     Route: 030
     Dates: start: 20150401
  5. CHEMOTHERAPY [Concomitant]
     Active Substance: UNSPECIFIED INGREDIENT

REACTIONS (6)
  - Haemorrhage [Unknown]
  - Musculoskeletal pain [Recovered/Resolved]
  - Abdominal pain [Recovered/Resolved]
  - Hypertension [Unknown]
  - Pain [Unknown]
  - Pruritus [Unknown]
